FAERS Safety Report 6346527-7 (Version None)
Quarter: 2009Q3

REPORT INFORMATION
  Report Type: 
  Country: None (occurrence: None)
  Receive Date: 20090909
  Receipt Date: 20090828
  Transmission Date: 20100115
  Serious: Yes (Hospitalization, Other)
  Sender: FDA-Public Use
  Company Number: FR-WYE-H09928009

PATIENT
  Sex: Female

DRUGS (9)
  1. INIPOMP [Suspect]
     Dosage: ^LONG STANDING THERAPY^ TO 21-MAR-2009,  20MG/DAY
     Route: 048
  2. CARTREX [Suspect]
     Dosage: START DATE UNKNOWN TO 21-MAR-2009, UNKNOWN DOSE
     Route: 048
  3. LOVENOX [Suspect]
     Dosage: UNKNOWN
     Route: 058
     Dates: start: 20090311, end: 20090321
  4. TAREG [Concomitant]
     Dosage: 160 MG, FREQUENCY UNKNOWN
  5. PLAVIX [Concomitant]
     Dosage: 75 MG, FREQUENCY UNKNOWN
     Route: 048
     Dates: start: 20090319, end: 20090321
  6. NORSET [Concomitant]
     Dosage: 15 MG, FREQUENCY UNKNOWN
  7. GLEEVEC [Concomitant]
     Dosage: 300 MG, FREQUENCY UNKNOWN
  8. KARDEGIC [Suspect]
     Dosage: 1 DOSAGE FORM, FREQUENCY UNSPECIFIED
     Route: 048
     Dates: start: 20090317, end: 20090319
  9. AUGMENTIN [Suspect]
     Indication: HYPERTHERMIA
     Dosage: UNKNOWN
     Dates: start: 20090301, end: 20090301

REACTIONS (10)
  - APHTHOUS STOMATITIS [None]
  - EOSINOPHILIA [None]
  - HYPERTHERMIA [None]
  - LYMPHADENOPATHY [None]
  - PURPURA [None]
  - RASH ERYTHEMATOUS [None]
  - RASH MACULO-PAPULAR [None]
  - RASH PRURITIC [None]
  - SKIN PLAQUE [None]
  - TOXIC SKIN ERUPTION [None]
